FAERS Safety Report 22301508 (Version 1)
Quarter: 2023Q2

REPORT INFORMATION
  Report Type: Spontaneous
  Country: CN (occurrence: CN)
  Receive Date: 20230510
  Receipt Date: 20230510
  Transmission Date: 20230722
  Serious: Yes (Other)
  Sender: FDA-Public Use
  Company Number: CN-BoehringerIngelheim-2023-BI-236191

PATIENT
  Age: 87 Year
  Sex: Female
  Weight: 70 kg

DRUGS (1)
  1. ALTEPLASE [Suspect]
     Active Substance: ALTEPLASE
     Indication: Thrombolysis
     Route: 042
     Dates: start: 20230428, end: 20230428

REACTIONS (3)
  - Cerebral haemorrhage [Unknown]
  - Brain herniation [Unknown]
  - Off label use [Unknown]

NARRATIVE: CASE EVENT DATE: 20230429
